FAERS Safety Report 12947245 (Version 1)
Quarter: 2016Q4

REPORT INFORMATION
  Report Type: Spontaneous
  Country: US (occurrence: US)
  Receive Date: 20161116
  Receipt Date: 20161116
  Transmission Date: 20170207
  Serious: Yes (Disabling, Other)
  Sender: FDA-Public Use
  Company Number: None

PATIENT
  Age: 64 Year
  Sex: Female
  Weight: 68.1 kg

DRUGS (17)
  1. KLOR-CON [Concomitant]
     Active Substance: POTASSIUM CHLORIDE
  2. RECLAST [Suspect]
     Active Substance: ZOLEDRONIC ACID
     Indication: OSTEOPOROSIS
     Dosage: 5MG/100ML 1 VIAL ONCE A YEAR INTRAVENOUS INJECTION?
     Route: 042
     Dates: start: 20161014, end: 20161014
  3. CANE [Concomitant]
  4. ACCUPRIL [Concomitant]
     Active Substance: QUINAPRIL HYDROCHLORIDE
  5. PLAVIX [Concomitant]
     Active Substance: CLOPIDOGREL BISULFATE
  6. ASPIRIN. [Concomitant]
     Active Substance: ASPIRIN
  7. PROTONIX [Concomitant]
     Active Substance: PANTOPRAZOLE SODIUM
  8. CRESTOR [Concomitant]
     Active Substance: ROSUVASTATIN CALCIUM
  9. NORVASC [Concomitant]
     Active Substance: AMLODIPINE BESYLATE
  10. FLAXSEED [Concomitant]
     Active Substance: FLAX SEED
  11. PREDNISONE. [Concomitant]
     Active Substance: PREDNISONE
  12. METOPROLOL. [Concomitant]
     Active Substance: METOPROLOL
  13. TYLENOL EXTRA STRENGTH [Concomitant]
     Active Substance: ACETAMINOPHEN
  14. MULTIVITAMIN [Concomitant]
     Active Substance: VITAMINS
  15. VITAMIN D3 [Concomitant]
     Active Substance: CHOLECALCIFEROL
  16. VITAMIN K [Concomitant]
     Active Substance: PHYTONADIONE
  17. CALCIUM [Concomitant]
     Active Substance: CALCIUM

REACTIONS (12)
  - Toothache [None]
  - Headache [None]
  - Palpitations [None]
  - Pain [None]
  - Rash macular [None]
  - Pyrexia [None]
  - Chills [None]
  - Arthralgia [None]
  - Peripheral swelling [None]
  - Eye swelling [None]
  - Joint swelling [None]
  - Bone pain [None]

NARRATIVE: CASE EVENT DATE: 20161014
